FAERS Safety Report 4837681-4 (Version None)
Quarter: 2005Q4

REPORT INFORMATION
  Report Type: 
  Country: None (occurrence: None)
  Receive Date: 20051128
  Receipt Date: 20050725
  Transmission Date: 20060501
  Serious: Yes (Death, Life-Threatening, Hospitalization)
  Sender: FDA-Public Use
  Company Number: US-MERCK-0507USA03909

PATIENT
  Age: 77 Year
  Sex: Female
  Weight: 70 kg

DRUGS (25)
  1. VIOXX [Suspect]
     Indication: ARTHRITIS
     Route: 048
     Dates: start: 19990101
  2. VIOXX [Suspect]
     Route: 048
     Dates: end: 20030701
  3. LIPITOR [Concomitant]
     Indication: BLOOD CHOLESTEROL INCREASED
     Route: 065
     Dates: start: 19990801, end: 20031001
  4. AMITRIPTYLINE HYDROCHLORIDE [Concomitant]
     Indication: DEPRESSION
     Route: 065
     Dates: start: 19990801, end: 20031001
  5. PREMARIN [Concomitant]
     Indication: POSTMENOPAUSE
     Route: 065
  6. LOTREL [Concomitant]
     Indication: HYPERTENSION
     Route: 065
     Dates: start: 19990701, end: 20031001
  7. FLONASE [Concomitant]
     Route: 065
  8. ZITHROMAX [Concomitant]
     Route: 065
  9. DOXYCYCLINE [Concomitant]
     Route: 065
  10. PREDNISONE [Concomitant]
     Route: 065
  11. AUGMENTIN [Concomitant]
     Route: 065
  12. CELEBREX [Concomitant]
     Indication: ARTHRITIS
     Route: 065
  13. ULTRAM [Concomitant]
     Indication: PAIN
     Route: 065
  14. FOSAMAX [Concomitant]
     Indication: OSTEOPOROSIS
     Route: 065
  15. GUAIFENESIN [Concomitant]
     Route: 065
  16. CILOXAN [Concomitant]
     Route: 065
  17. ARMOUR THYROID TABLETS [Concomitant]
     Indication: HYPOTHYROIDISM
     Route: 065
  18. ZESTRIL [Concomitant]
     Route: 065
     Dates: start: 19970101
  19. PROTONIX [Concomitant]
     Indication: GASTROOESOPHAGEAL REFLUX DISEASE
     Route: 065
  20. LASIX [Concomitant]
     Route: 065
  21. PROCARDIA [Concomitant]
     Route: 065
     Dates: start: 19930101
  22. ASPIRIN [Concomitant]
     Indication: PROPHYLAXIS
     Route: 048
     Dates: start: 19930101, end: 20031001
  23. ASPIRIN [Concomitant]
     Route: 048
     Dates: start: 19990601
  24. RELAFEN [Concomitant]
     Indication: ARTHRITIS
     Route: 065
     Dates: start: 19930101
  25. ZOLOFT [Concomitant]
     Indication: DEPRESSION
     Route: 065
     Dates: start: 19931001

REACTIONS (33)
  - ANAEMIA [None]
  - ANGINA PECTORIS [None]
  - ASTHENIA [None]
  - ATRIAL FIBRILLATION [None]
  - BUNDLE BRANCH BLOCK RIGHT [None]
  - CARDIAC FAILURE CONGESTIVE [None]
  - CARDIOMEGALY [None]
  - CARDIOPULMONARY FAILURE [None]
  - CATARACT [None]
  - CEREBROVASCULAR ACCIDENT [None]
  - CHRONIC OBSTRUCTIVE PULMONARY DISEASE [None]
  - CORONARY ARTERY DISEASE [None]
  - DEEP VEIN THROMBOSIS [None]
  - DEPRESSION [None]
  - DRUG HYPERSENSITIVITY [None]
  - DUODENITIS [None]
  - EMBOLISM [None]
  - FALL [None]
  - FEMORAL ARTERY OCCLUSION [None]
  - GASTRIC HAEMORRHAGE [None]
  - GASTRIC ULCER [None]
  - GASTRITIS [None]
  - GASTROINTESTINAL HAEMORRHAGE [None]
  - GASTROOESOPHAGEAL REFLUX DISEASE [None]
  - HEPATIC EMBOLISATION [None]
  - HIATUS HERNIA [None]
  - HYPOCHROMIC ANAEMIA [None]
  - IRON DEFICIENCY ANAEMIA [None]
  - PERIPHERAL EMBOLISM [None]
  - PERIPHERAL VASCULAR DISORDER [None]
  - PNEUMONIA [None]
  - PULMONARY EMBOLISM [None]
  - THERAPEUTIC AGENT TOXICITY [None]
